FAERS Safety Report 6758834-4 (Version None)
Quarter: 2010Q2

REPORT INFORMATION
  Report Type: 
  Country: None (occurrence: None)
  Receive Date: 20100607
  Receipt Date: 20100531
  Transmission Date: 20101027
  Serious: Yes (Life-Threatening, Hospitalization)
  Sender: FDA-Public Use
  Company Number: GXKR2010DE04873

PATIENT
  Age: 73 Year
  Sex: Female
  Weight: 61 kg

DRUGS (8)
  1. RAMIPRIL [Suspect]
     Indication: HYPERTENSION
     Dosage: 5 MG, BID
     Route: 048
     Dates: start: 20090201, end: 20100108
  2. AMIODARONE (NGX) [Suspect]
     Indication: TACHYCARDIA
     Dosage: 200 MG, QD
     Route: 048
     Dates: start: 20090201
  3. ALDACTONE [Suspect]
     Indication: HYPERTENSION
     Dosage: 25 MG, QD
     Route: 048
     Dates: start: 20091201, end: 20100108
  4. AMLODIPINE [Concomitant]
  5. BISOPROLOL [Concomitant]
  6. ACETYLSALICYLIC ACID [Concomitant]
     Indication: ISCHAEMIC HEART DISEASE PROPHYLAXIS
  7. L-THYROXIN ^HENNING BERLIN^ [Concomitant]
  8. SIMVASTATIN [Concomitant]

REACTIONS (1)
  - HYPONATRAEMIA [None]
